FAERS Safety Report 25079654 (Version 1)
Quarter: 2025Q1

REPORT INFORMATION
  Report Type: Spontaneous
  Country: CA (occurrence: CA)
  Receive Date: 20250314
  Receipt Date: 20250314
  Transmission Date: 20250409
  Serious: Yes (Hospitalization)
  Sender: LUNDBECK
  Company Number: CA-LUNDBECK-DKLU4011756

PATIENT
  Age: 20 Year
  Sex: Male

DRUGS (18)
  1. CLOBAZAM [Suspect]
     Active Substance: CLOBAZAM
     Indication: Early infantile epileptic encephalopathy with burst-suppression
  2. CLOBAZAM [Suspect]
     Active Substance: CLOBAZAM
     Indication: Lennox-Gastaut syndrome
  3. MEMANTINE [Suspect]
     Active Substance: MEMANTINE
     Indication: Early infantile epileptic encephalopathy with burst-suppression
  4. MEMANTINE [Suspect]
     Active Substance: MEMANTINE
     Indication: Lennox-Gastaut syndrome
  5. CARBAMAZEPINE [Suspect]
     Active Substance: CARBAMAZEPINE
     Indication: Early infantile epileptic encephalopathy with burst-suppression
  6. CARBAMAZEPINE [Suspect]
     Active Substance: CARBAMAZEPINE
     Indication: Lennox-Gastaut syndrome
  7. CLONAZEPAM [Suspect]
     Active Substance: CLONAZEPAM
     Indication: Early infantile epileptic encephalopathy with burst-suppression
  8. CLONAZEPAM [Suspect]
     Active Substance: CLONAZEPAM
     Indication: Lennox-Gastaut syndrome
  9. LAMOTRIGINE [Suspect]
     Active Substance: LAMOTRIGINE
     Indication: Early infantile epileptic encephalopathy with burst-suppression
  10. LAMOTRIGINE [Suspect]
     Active Substance: LAMOTRIGINE
     Indication: Lennox-Gastaut syndrome
  11. LEVETIRACETAM [Suspect]
     Active Substance: LEVETIRACETAM
     Indication: Early infantile epileptic encephalopathy with burst-suppression
  12. LEVETIRACETAM [Suspect]
     Active Substance: LEVETIRACETAM
     Indication: Lennox-Gastaut syndrome
  13. PERAMPANEL [Suspect]
     Active Substance: PERAMPANEL
     Indication: Early infantile epileptic encephalopathy with burst-suppression
  14. PERAMPANEL [Suspect]
     Active Substance: PERAMPANEL
     Indication: Lennox-Gastaut syndrome
  15. VALPROATE SODIUM [Suspect]
     Active Substance: VALPROATE SODIUM
     Indication: Early infantile epileptic encephalopathy with burst-suppression
  16. VALPROATE SODIUM [Suspect]
     Active Substance: VALPROATE SODIUM
     Indication: Lennox-Gastaut syndrome
  17. TOPIRAMATE [Suspect]
     Active Substance: TOPIRAMATE
     Indication: Early infantile epileptic encephalopathy with burst-suppression
  18. TOPIRAMATE [Suspect]
     Active Substance: TOPIRAMATE
     Indication: Lennox-Gastaut syndrome

REACTIONS (2)
  - Drug ineffective [Unknown]
  - Product use in unapproved indication [Unknown]
